FAERS Safety Report 19728097 (Version 1)
Quarter: 2021Q3

REPORT INFORMATION
  Report Type: Spontaneous
  Country: CN (occurrence: CN)
  Receive Date: 20210820
  Receipt Date: 20210820
  Transmission Date: 20211014
  Serious: Yes (Other)
  Sender: FDA-Public Use
  Company Number: CN-BRISTOL-MYERS SQUIBB COMPANY-BMS-2021-079736

PATIENT
  Age: 54 Year
  Sex: Male
  Weight: 54 kg

DRUGS (1)
  1. OPDIVO [Suspect]
     Active Substance: NIVOLUMAB
     Indication: GASTRIC CANCER
     Dosage: 200 MG, ONCE EVERY 14 DAYS
     Route: 041
     Dates: start: 20210107, end: 20210810

REACTIONS (4)
  - Anti-thyroid antibody positive [Unknown]
  - Blood thyroid stimulating hormone decreased [Unknown]
  - Thyroglobulin increased [Unknown]
  - Prescribed overdose [Unknown]

NARRATIVE: CASE EVENT DATE: 20210407
